FAERS Safety Report 7986359-7 (Version None)
Quarter: 2011Q4

REPORT INFORMATION
  Report Type: 
  Country: None (occurrence: None)
  Receive Date: 20111216
  Receipt Date: 20101208
  Transmission Date: 20120403
  Serious: No
  Sender: FDA-Public Use
  Company Number: US-GLAXOSMITHKLINE-A0898586A

PATIENT
  Age: 57 Year
  Sex: Male

DRUGS (3)
  1. LISINOPRIL [Concomitant]
  2. COREG CR [Suspect]
     Indication: CARDIOMYOPATHY
     Dosage: 20MG PER DAY
     Route: 048
     Dates: start: 20090701
  3. XANAX [Concomitant]

REACTIONS (2)
  - FATIGUE [None]
  - ARRHYTHMIA [None]
